FAERS Safety Report 7033570-8 (Version None)
Quarter: 2010Q4

REPORT INFORMATION
  Report Type: 
  Country: None (occurrence: None)
  Receive Date: 20101007
  Receipt Date: 20100924
  Transmission Date: 20110411
  Serious: Yes (Hospitalization, Other)
  Sender: FDA-Public Use
  Company Number: PHHY2010VE63910

PATIENT
  Age: 14 Year
  Sex: Female

DRUGS (1)
  1. TRILEPTAL [Suspect]
     Route: 048

REACTIONS (5)
  - MUCOSAL NECROSIS [None]
  - PULMONARY NECROSIS [None]
  - RASH [None]
  - SKIN NECROSIS [None]
  - ULCERATIVE KERATITIS [None]
